FAERS Safety Report 6293081-4 (Version None)
Quarter: 2009Q3

REPORT INFORMATION
  Report Type: 
  Country: None (occurrence: None)
  Receive Date: 20090731
  Receipt Date: 20090730
  Transmission Date: 20100115
  Serious: Yes (Other)
  Sender: FDA-Public Use
  Company Number: US-BRISTOL-MYERS SQUIBB COMPANY-14717037

PATIENT
  Age: 30 Year
  Sex: Female

DRUGS (4)
  1. REYATAZ [Suspect]
     Indication: HIV INFECTION
     Route: 048
     Dates: start: 20090701
  2. RITONAVIR [Suspect]
     Indication: HIV INFECTION
     Route: 048
     Dates: start: 20090701
  3. TRUVADA [Suspect]
     Indication: HIV INFECTION
     Dosage: 1DF=1TAB
     Route: 048
     Dates: start: 20090701
  4. BACTRIM [Concomitant]
     Dates: start: 20090701

REACTIONS (3)
  - EAR CONGESTION [None]
  - LYMPHADENOPATHY [None]
  - PERIORBITAL OEDEMA [None]
